FAERS Safety Report 10146712 (Version 2)
Quarter: 2014Q2

REPORT INFORMATION
  Report Type: Spontaneous
  Country: JP (occurrence: None)
  Receive Date: 20140429
  Receipt Date: 20140516
  Transmission Date: 20141212
  Serious: Yes (Other)
  Sender: FDA-Public Use
  Company Number: 2306932

PATIENT
  Age: 61 Year
  Sex: Male
  Weight: 60 kg

DRUGS (11)
  1. GEMCITABINE HYDROCHLORIDE [Suspect]
     Indication: LUNG NEOPLASM MALIGNANT
     Route: 042
     Dates: start: 20140107, end: 20140114
  2. CARBOPLATIN [Concomitant]
  3. GRANISETRON HYDROCHLORIDE [Concomitant]
  4. DEXAMETHASONE [Concomitant]
  5. METOCLOPRAMIDE [Concomitant]
  6. CODEINE PHOSPHATE [Concomitant]
  7. MAGNESIUM OXIDE [Concomitant]
  8. AZULENE SODIUM SULFONATE [Concomitant]
  9. SALINE [Concomitant]
  10. DEXTROMETHORPHAN HYDROBROMIDE [Concomitant]
  11. OMEPRAZOLE [Concomitant]

REACTIONS (1)
  - Interstitial lung disease [None]
